FAERS Safety Report 14608596 (Version 1)
Quarter: 2018Q1

REPORT INFORMATION
  Report Type: Spontaneous
  Country: US (occurrence: US)
  Receive Date: 20180307
  Receipt Date: 20180307
  Transmission Date: 20180509
  Serious: No
  Sender: FDA-Public Use
  Company Number: US-PTC THERAPEUTICS, INC.-US-2018PTC000052

PATIENT

DRUGS (6)
  1. EMFLAZA [Suspect]
     Active Substance: DEFLAZACORT
     Dosage: 31 MG, QD
     Route: 048
  2. MICONAZOLE. [Concomitant]
     Active Substance: MICONAZOLE
     Indication: PRODUCT USED FOR UNKNOWN INDICATION
     Dosage: 2 TIMES, QD
  3. EMFLAZA [Suspect]
     Active Substance: DEFLAZACORT
     Indication: DUCHENNE MUSCULAR DYSTROPHY
     Dosage: 1.4 ML, QD
     Route: 048
     Dates: start: 20171220
  4. CALCIUM CARBONATE. [Concomitant]
     Active Substance: CALCIUM CARBONATE
     Indication: PRODUCT USED FOR UNKNOWN INDICATION
     Dosage: 500 MG, QD
     Route: 048
  5. VITAMIN D3 [Concomitant]
     Active Substance: CHOLECALCIFEROL
     Indication: PRODUCT USED FOR UNKNOWN INDICATION
     Dosage: 1000 UNITS, QD
     Route: 048
  6. SPIRULINA                          /01514001/ [Concomitant]
     Active Substance: SPIRULINA
     Indication: PRODUCT USED FOR UNKNOWN INDICATION
     Dosage: UNK, QD
     Route: 048

REACTIONS (4)
  - Tracheal disorder [Recovered/Resolved]
  - Dyspnoea [Recovered/Resolved]
  - Nausea [Recovered/Resolved]
  - Panic attack [Recovered/Resolved]

NARRATIVE: CASE EVENT DATE: 20180112
